FAERS Safety Report 5977840-0 (Version None)
Quarter: 2008Q4

REPORT INFORMATION
  Report Type: 
  Country: None (occurrence: None)
  Receive Date: 20081203
  Receipt Date: 20081121
  Transmission Date: 20090506
  Serious: Yes (Hospitalization)
  Sender: FDA-Public Use
  Company Number: JP-SANOFI-SYNTHELABO-A01200812501

PATIENT
  Sex: Male
  Weight: 68.7 kg

DRUGS (5)
  1. FERRUM [Concomitant]
     Indication: IRON DEFICIENCY ANAEMIA
     Dosage: 305 MG
     Route: 048
     Dates: start: 20080913
  2. PLAVIX [Suspect]
     Indication: BRAIN STEM INFARCTION
     Dosage: 75 MG
     Route: 048
     Dates: start: 20080905, end: 20081003
  3. PLAVIX [Suspect]
     Indication: CEREBELLAR INFARCTION
     Dosage: 75 MG
     Route: 048
     Dates: start: 20080905, end: 20081003
  4. PLAVIX [Suspect]
     Indication: CEREBRAL INFARCTION
     Dosage: 75 MG
     Route: 048
     Dates: start: 20080905, end: 20081003
  5. TAKEPRON [Concomitant]
     Indication: PROPHYLAXIS AGAINST GASTROINTESTINAL ULCER
     Dosage: 15 MG
     Route: 048
     Dates: start: 20080905

REACTIONS (5)
  - ALANINE AMINOTRANSFERASE INCREASED [None]
  - ASPARTATE AMINOTRANSFERASE INCREASED [None]
  - BLOOD ALKALINE PHOSPHATASE INCREASED [None]
  - CHOLESTASIS [None]
  - HEPATIC FUNCTION ABNORMAL [None]
